FAERS Safety Report 21346498 (Version 2)
Quarter: 2022Q4

REPORT INFORMATION
  Report Type: Spontaneous
  Country: US (occurrence: US)
  Receive Date: 20220917
  Receipt Date: 20221005
  Transmission Date: 20230113
  Serious: Yes (Other)
  Sender: FDA-Public Use
  Company Number: US-NOVARTISPH-NVSC2022US210387

PATIENT
  Age: 16 Year
  Sex: Male

DRUGS (12)
  1. CANAKINUMAB [Suspect]
     Active Substance: CANAKINUMAB
     Indication: Cushing^s syndrome
     Dosage: UNK
     Route: 065
  2. CANAKINUMAB [Suspect]
     Active Substance: CANAKINUMAB
     Indication: Osteonecrosis
  3. TOCILIZUMAB [Suspect]
     Active Substance: TOCILIZUMAB
     Indication: Osteonecrosis
     Dosage: UNK
     Route: 065
  4. TOCILIZUMAB [Suspect]
     Active Substance: TOCILIZUMAB
     Indication: Cushing^s syndrome
  5. ANAKINRA [Suspect]
     Active Substance: ANAKINRA
     Indication: Osteonecrosis
     Dosage: UNK
     Route: 065
  6. ANAKINRA [Suspect]
     Active Substance: ANAKINRA
     Indication: Cushing^s syndrome
  7. COLCHICINE [Suspect]
     Active Substance: COLCHICINE
     Indication: Osteonecrosis
     Dosage: UNK
     Route: 065
  8. COLCHICINE [Suspect]
     Active Substance: COLCHICINE
     Indication: Cushing^s syndrome
  9. INFLIXIMAB [Suspect]
     Active Substance: INFLIXIMAB
     Indication: Osteonecrosis
     Dosage: UNK
     Route: 065
  10. INFLIXIMAB [Suspect]
     Active Substance: INFLIXIMAB
     Indication: Cushing^s syndrome
  11. VEDOLIZUMAB [Suspect]
     Active Substance: VEDOLIZUMAB
     Indication: Osteonecrosis
     Dosage: UNK
     Route: 065
  12. VEDOLIZUMAB [Suspect]
     Active Substance: VEDOLIZUMAB
     Indication: Cushing^s syndrome

REACTIONS (4)
  - Hepatitis [Unknown]
  - Treatment failure [Unknown]
  - Abscess soft tissue [Unknown]
  - Product use in unapproved indication [Unknown]
